FAERS Safety Report 23276480 (Version 1)
Quarter: 2023Q4

REPORT INFORMATION
  Report Type: Spontaneous
  Country: JP (occurrence: JP)
  Receive Date: 20231208
  Receipt Date: 20231208
  Transmission Date: 20240110
  Serious: Yes (Hospitalization, Other)
  Sender: FDA-Public Use
  Company Number: JP-PFIZER INC-PV202300197118

PATIENT
  Age: 84 Year
  Sex: Female
  Weight: 41.7 kg

DRUGS (16)
  1. RHEUMATREX [Suspect]
     Active Substance: METHOTREXATE SODIUM
     Indication: Rheumatoid arthritis
     Dosage: 4 MG AT A TIME, ONCE A WEEK
     Route: 048
     Dates: start: 20220427, end: 20230923
  2. IGURATIMOD [Suspect]
     Active Substance: IGURATIMOD
     Indication: Rheumatoid arthritis
     Dosage: 1 DF, 2X/DAY
     Route: 048
     Dates: start: 202009, end: 20230923
  3. FOLIC ACID [Concomitant]
     Active Substance: FOLIC ACID
     Dosage: 1 DF, 1X/DAY
     Dates: start: 20230427, end: 20230923
  4. PREGABALIN [Concomitant]
     Active Substance: PREGABALIN
     Dosage: 1 DF, 1X/DAY, AFTER DINNER
     Dates: start: 20220525
  5. FLOMOX [CEFCAPENE PIVOXIL HYDROCHLORIDE HYDRATE] [Concomitant]
     Dosage: 1 DF, 3X/DAY, AFTER MEALS
     Dates: end: 20230924
  6. BIFUROXIN [PYRIDOXINE HYDROCHLORIDE;RIBOFLAVIN] [Concomitant]
     Dosage: 1 DF, 2X/DAY, AFTER BREAKFAST AND DINNER
  7. DOMPERIDONE EMEC [Concomitant]
     Dosage: 1 DF, 2X/DAY, AFTER BREAKFAST AND DINNER
  8. MAGNESIUM OXIDE [Concomitant]
     Active Substance: MAGNESIUM OXIDE
     Dosage: 1 DF, 1X/DAY, BEFORE SLEEPING
  9. LANSOPRAZOLE [Concomitant]
     Active Substance: LANSOPRAZOLE
     Dosage: 1 DF, 1X/DAY, AFTER BREAKFAST
  10. AMLODIPINE BESYLATE [Concomitant]
     Active Substance: AMLODIPINE BESYLATE
     Dosage: 1 DF, 1X/DAY, AFTER BREAKFAST
  11. AMLODIPINE [Concomitant]
     Active Substance: AMLODIPINE BESYLATE
     Dosage: 1 DF, 1X/DAY, AFTER BREAKFAST
  12. ELDECALCITOL [Concomitant]
     Active Substance: ELDECALCITOL
     Dosage: 1 DF, 1X/DAY, AFTER BREAKFAST
  13. MINODRONIC ACID [Concomitant]
     Active Substance: MINODRONIC ACID
     Dosage: 1 DF, MONTHLY, WHEN GOT UP
  14. ZOLPIDEM TARTRATE TOWA [Concomitant]
     Dosage: 1 DF, 1X/DAY, BEFORE SLEEPING
  15. DIQUAFOSOL TETRASODIUM [Concomitant]
     Active Substance: DIQUAFOSOL TETRASODIUM
     Dosage: 4X/DAY
     Route: 047
  16. MIOPIN [Concomitant]
     Dosage: 4X/DAY
     Route: 047

REACTIONS (7)
  - Rheumatoid arthritis-associated interstitial lung disease [Recovering/Resolving]
  - Condition aggravated [Recovering/Resolving]
  - Pneumonia bacterial [Recovering/Resolving]
  - Pneumonia [Recovering/Resolving]
  - Nausea [Unknown]
  - Decreased appetite [Unknown]
  - White blood cells urine positive [Unknown]

NARRATIVE: CASE EVENT DATE: 20230801
